FAERS Safety Report 8724968 (Version 2)
Quarter: 2012Q4

REPORT INFORMATION
  Report Type: Report from Study
  Country: JP (occurrence: JP)
  Receive Date: 20120813
  Receipt Date: 20121030
  Transmission Date: 20130627
  Serious: Yes (Other)
  Sender: FDA-Public Use
  Company Number: JP-009507513-1208JPN004947

PATIENT
  Age: 68 Year
  Sex: Female
  Weight: 59 kg

DRUGS (12)
  1. PEGINTRON [Suspect]
     Indication: HEPATITIS C
     Dosage: 1.5 ug/kg/week
     Route: 058
     Dates: start: 20120403, end: 20120910
  2. REBETOL [Suspect]
     Indication: HEPATITIS C
     Dosage: 400 mg, qd
     Route: 048
     Dates: start: 20120403, end: 20120415
  3. REBETOL [Suspect]
     Dosage: 200 mg, qd
     Route: 048
     Dates: start: 20120416, end: 20120826
  4. TELAVIC [Suspect]
     Indication: HEPATITIS C
     Dosage: 1500 mg, Once
     Route: 048
     Dates: start: 20120403
  5. OLMETEC [Concomitant]
     Indication: HYPERTENSION
     Dosage: 20 mg, qd
     Route: 048
  6. THYRADIN [Concomitant]
     Indication: HYPOTHYROIDISM
     Dosage: 25 mg, qd
     Route: 048
  7. SEFTAC [Concomitant]
     Indication: GASTRITIS
     Dosage: 150 mg, qd
     Route: 048
  8. ASPARA K [Concomitant]
     Indication: HYPOKALAEMIA
     Dosage: 1200 mg, qd
     Route: 048
  9. BAYASPIRIN [Concomitant]
     Indication: ANGINA PECTORIS
     Dosage: 100 mg, qd
     Route: 048
  10. EURODIN (DIHYDROERGOCRISTINE MESYLATE) [Concomitant]
     Indication: INSOMNIA
     Dosage: 2 mg, qd
     Route: 048
  11. LIVALO [Concomitant]
     Indication: HYPERLIPIDAEMIA
     Dosage: 2 mg, qd
     Route: 048
  12. EPADEL [Concomitant]
     Indication: HYPERLIPIDAEMIA
     Dosage: 1800 mg, qd
     Route: 048

REACTIONS (1)
  - Anaemia [Not Recovered/Not Resolved]
